FAERS Safety Report 22619981 (Version 1)
Quarter: 2023Q2

REPORT INFORMATION
  Report Type: Report from Study
  Country: IT (occurrence: IT)
  Receive Date: 20230620
  Receipt Date: 20230620
  Transmission Date: 20230722
  Serious: Yes (Hospitalization, Other)
  Sender: FDA-Public Use
  Company Number: None

PATIENT
  Age: 38 Year
  Sex: Male

DRUGS (3)
  1. XANAX [Suspect]
     Active Substance: ALPRAZOLAM
     Indication: Product used for unknown indication
     Dosage: 1 DOSAGE FORM, TOTAL
     Route: 048
     Dates: start: 20230530, end: 20230530
  2. ANTABUSE [Suspect]
     Active Substance: DISULFIRAM
     Indication: Alcoholism
     Dosage: 1.5 DF, 1/2 CP (AS PER PRESCRIPTION)
     Route: 048
  3. VALPROATE SODIUM [Suspect]
     Active Substance: VALPROATE SODIUM
     Indication: Product used for unknown indication
     Dosage: 8DF,QD (PRESCRIBED 1200 MG)TAKEN 8CP THIS MORNING
     Route: 048
     Dates: start: 20230530, end: 20230530

REACTIONS (8)
  - Electrocardiogram QRS complex shortened [Unknown]
  - Drug abuse [Unknown]
  - Cold sweat [Unknown]
  - Feeling of body temperature change [Not Recovered/Not Resolved]
  - Anxiety [Unknown]
  - Tremor [Unknown]
  - Vomiting [Unknown]
  - Nausea [Recovered/Resolved]

NARRATIVE: CASE EVENT DATE: 20230530
